FAERS Safety Report 7687237-3 (Version None)
Quarter: 2011Q3

REPORT INFORMATION
  Report Type: 
  Country: None (occurrence: None)
  Receive Date: 20110816
  Receipt Date: 20110803
  Transmission Date: 20111222
  Serious: Yes (Hospitalization)
  Sender: FDA-Public Use
  Company Number: DE-CELGENEUS-062-21880-09020406

PATIENT
  Age: 72 Year
  Sex: Female
  Weight: 68 kg

DRUGS (4)
  1. REVLIMID [Suspect]
     Route: 048
     Dates: start: 20090210
  2. CICLOSPARIN [Concomitant]
     Indication: PROPHYLAXIS AGAINST GRAFT VERSUS HOST DISEASE
     Dosage: 100-200 MG
     Route: 065
     Dates: start: 20080719
  3. REVLIMID [Suspect]
     Dosage: 5 MILLIGRAM
     Route: 048
     Dates: start: 20081229, end: 20090118
  4. SANDIMMUNE [Concomitant]
     Indication: PROPHYLAXIS AGAINST GRAFT VERSUS HOST DISEASE
     Route: 065

REACTIONS (2)
  - VIRAL INFECTION [None]
  - DIARRHOEA [None]
